FAERS Safety Report 20247273 (Version 2)
Quarter: 2022Q1

REPORT INFORMATION
  Report Type: Spontaneous
  Country: IT (occurrence: IT)
  Receive Date: 20211229
  Receipt Date: 20220107
  Transmission Date: 20220424
  Serious: Yes (Death)
  Sender: FDA-Public Use
  Company Number: IT-PFIZER INC-202101695559

PATIENT
  Age: 45 Year
  Sex: Male

DRUGS (4)
  1. FONDAPARINUX [Suspect]
     Active Substance: FONDAPARINUX
     Indication: Cerebral venous sinus thrombosis
     Dosage: UNK
     Route: 065
  2. FONDAPARINUX [Suspect]
     Active Substance: FONDAPARINUX
     Indication: Thrombocytopenia
  3. DEXAMETHASONE SODIUM PHOSPHATE [Suspect]
     Active Substance: DEXAMETHASONE SODIUM PHOSPHATE
     Indication: Thrombocytopenia
     Dosage: UNK
     Route: 065
  4. DEXAMETHASONE SODIUM PHOSPHATE [Suspect]
     Active Substance: DEXAMETHASONE SODIUM PHOSPHATE
     Indication: Cerebral venous sinus thrombosis

REACTIONS (2)
  - Drug ineffective [Fatal]
  - Off label use [Fatal]
